FAERS Safety Report 8711502 (Version 2)
Quarter: 2012Q4

REPORT INFORMATION
  Report Type: Report from Study
  Country: BE (occurrence: BE)
  Receive Date: 20120807
  Receipt Date: 20120919
  Transmission Date: 20130627
  Serious: Yes (Hospitalization)
  Sender: FDA-Public Use
  Company Number: BE-PFIZER INC-2012187900

PATIENT
  Age: 68 Year
  Sex: Female
  Weight: 78 kg

DRUGS (10)
  1. GENOTROPIN [Suspect]
     Indication: HYPOPITUITARISM
     Dosage: 0.2 mg, 7/wk
     Route: 058
     Dates: start: 20031205
  2. CABERGOLINE [Concomitant]
     Indication: NON-SECRETORY ADENOMA OF PITUITARY
     Dosage: UNK
     Dates: start: 19940912
  3. HYDROCORTISONE [Concomitant]
     Indication: BLOOD CORTICOTROPHIN DECREASED
     Dosage: UNK
     Dates: start: 19970319
  4. METHIMAZOLE [Concomitant]
     Indication: BASEDOW^S DISEASE
     Dosage: UNK
     Dates: start: 19970425
  5. DESMOPRESSIN [Concomitant]
     Indication: BLOOD ANTIDIURETIC HORMONE DECREASED
     Dosage: UNK
     Dates: start: 19980915
  6. CYCLOCUR [Concomitant]
     Indication: BLOOD LUTEINISING HORMONE DECREASED
     Dosage: UNK
     Dates: start: 19991015
  7. CYCLOCUR [Concomitant]
     Indication: BLOOD FOLLICLE STIMULATING HORMONE DECREASED
  8. METHYLPREDNISOLONE [Concomitant]
     Indication: ENDOCRINE OPHTHALMOPATHY
     Dosage: UNK
     Dates: start: 20010305
  9. LEVOTHYROXINE [Concomitant]
     Indication: BLOOD THYROID STIMULATING HORMONE DECREASED
     Dosage: UNK
     Dates: start: 19951215
  10. FLUDEX [Concomitant]
     Indication: HYPERTENSION
     Dosage: UNK
     Dates: start: 20030718

REACTIONS (1)
  - Pneumonia [Unknown]
